FAERS Safety Report 6690634-6 (Version None)
Quarter: 2010Q2

REPORT INFORMATION
  Report Type: 
  Country: None (occurrence: None)
  Receive Date: 20100421
  Receipt Date: 20100419
  Transmission Date: 20101027
  Serious: Yes (Death)
  Sender: FDA-Public Use
  Company Number: US-GILEAD-2010-0028216

PATIENT
  Sex: Male

DRUGS (21)
  1. LETAIRIS [Suspect]
     Indication: PULMONARY ARTERIAL HYPERTENSION
     Route: 048
     Dates: start: 20100222
  2. OXYGEN [Concomitant]
  3. ASPIRIN [Concomitant]
  4. SPIRONOLACTONE [Concomitant]
  5. HYDROCHLOROTHIAZIDE [Concomitant]
  6. FUROSEMIDE [Concomitant]
  7. DIOVAN [Concomitant]
  8. METOPROLOL TARTRATE [Concomitant]
  9. NIASPAN [Concomitant]
  10. ZETIA [Concomitant]
  11. TRILIPIX [Concomitant]
  12. ADVAIR DISKUS 100/50 [Concomitant]
  13. HUMALOG [Concomitant]
  14. LANTUS [Concomitant]
  15. DIPHENOXYLATE [Concomitant]
  16. PROMETHAZINE [Concomitant]
  17. ALLOPURINOL [Concomitant]
  18. COLCHICINE [Concomitant]
  19. FOLIC ACID [Concomitant]
  20. VITAMIN B COMPLEX CAP [Concomitant]
  21. VITAMIN B-12 [Concomitant]

REACTIONS (3)
  - DEATH [None]
  - DYSPNOEA [None]
  - WHEEZING [None]
